FAERS Safety Report 9375840 (Version 2)
Quarter: 2013Q3

REPORT INFORMATION
  Report Type: Report from Study
  Country: US (occurrence: US)
  Receive Date: 20130628
  Receipt Date: 20130721
  Transmission Date: 20140515
  Serious: Yes (Hospitalization)
  Sender: FDA-Public Use
  Company Number: PHHY2013US066494

PATIENT
  Age: 65 Year
  Sex: Male

DRUGS (3)
  1. SANDOSTATIN LAR DEPOT [Suspect]
     Indication: NEUROENDOCRINE CARCINOMA
     Dosage: 20 MG, UNK
     Route: 030
     Dates: start: 20120522
  2. EVEROLIMUS [Suspect]
     Indication: NEUROENDOCRINE CARCINOMA
     Dosage: 10 MG, QD
     Route: 048
     Dates: start: 20120522
  3. BEVACIZUMAB [Suspect]
     Indication: NEUROENDOCRINE CARCINOMA
     Dosage: 10 MG/KG, UNK
     Route: 042
     Dates: start: 20120522

REACTIONS (3)
  - Encephalopathy [Recovered/Resolved]
  - Mental status changes [Unknown]
  - Ammonia increased [Recovered/Resolved]
